FAERS Safety Report 5295883-X (Version None)
Quarter: 2007Q2

REPORT INFORMATION
  Report Type: 
  Country: None (occurrence: None)
  Receive Date: 20070413
  Receipt Date: 20070405
  Transmission Date: 20071010
  Serious: Yes (Death, Other)
  Sender: FDA-Public Use
  Company Number: DE-AVENTIS-200710822DE

PATIENT
  Age: 48 Year
  Sex: Male
  Weight: 90 kg

DRUGS (11)
  1. TRENTAL [Suspect]
     Indication: EYE DISORDER
     Dosage: DOSE: NOT REPORTED
     Dates: start: 20061219, end: 20061219
  2. TRENTAL [Suspect]
     Indication: THROMBOSIS
     Dosage: DOSE: NOT REPORTED
     Dates: start: 20061219, end: 20061219
  3. TRENTAL [Suspect]
     Dosage: DOSE: 3X400 + 1X300
     Route: 042
     Dates: start: 20061220, end: 20061227
  4. CLEXANE [Suspect]
     Indication: EYE DISORDER
     Dates: start: 20061219, end: 20061219
  5. CLEXANE [Suspect]
     Indication: THROMBOSIS
     Dates: start: 20061219, end: 20061219
  6. CLEXANE [Suspect]
     Dates: start: 20061219, end: 20061227
  7. ASPIRIN [Suspect]
     Dosage: DOSE: NOT REPORTED
  8. CORTISONE ACETATE [Concomitant]
     Dates: start: 20061219, end: 20061222
  9. CORTISONE ACETATE [Concomitant]
     Dates: start: 20061223
  10. ULTRALAN                           /00226401/ [Concomitant]
  11. ULTRALAN                           /00226401/ [Concomitant]

REACTIONS (7)
  - CEREBRAL HAEMORRHAGE [None]
  - HAEMORRHAGIC DIATHESIS [None]
  - HEPATIC FAILURE [None]
  - INTESTINAL HAEMORRHAGE [None]
  - LOWER RESPIRATORY TRACT INFECTION BACTERIAL [None]
  - LOWER RESPIRATORY TRACT INFECTION FUNGAL [None]
  - LUNG INFECTION [None]
